FAERS Safety Report 19636001 (Version 1)
Quarter: 2021Q3

REPORT INFORMATION
  Report Type: Spontaneous
  Country: JP (occurrence: JP)
  Receive Date: 20210729
  Receipt Date: 20210729
  Transmission Date: 20211014
  Serious: Yes (Other)
  Sender: FDA-Public Use
  Company Number: JP-FRESENIUS KABI-FK202107934

PATIENT
  Age: 73 Year
  Sex: Male

DRUGS (1)
  1. MICAFUNGIN (MANUFACTURER UNKOWN) [Suspect]
     Active Substance: MICAFUNGIN
     Indication: CANDIDA INFECTION
     Route: 065

REACTIONS (1)
  - Acute kidney injury [Recovered/Resolved]
